FAERS Safety Report 8889078 (Version 17)
Quarter: 2014Q4

REPORT INFORMATION
  Report Type: Spontaneous
  Country: US (occurrence: US)
  Receive Date: 20121106
  Receipt Date: 20141223
  Transmission Date: 20150529
  Serious: Yes (Hospitalization, Other)
  Sender: FDA-Public Use
  Company Number: US-009507513-1211USA001655

PATIENT
  Sex: Female
  Weight: 53.52 kg

DRUGS (8)
  1. VITAMINS (UNSPECIFIED) [Concomitant]
     Active Substance: VITAMINS
     Dosage: 1 DAILY
     Route: 048
     Dates: start: 1970
  2. ALENDRONATE SODIUM. [Suspect]
     Active Substance: ALENDRONATE SODIUM
     Indication: OSTEOPOROSIS
     Dosage: 70 MG, UNK
     Route: 048
     Dates: start: 20080606, end: 20100110
  3. ALENDRONATE SODIUM. [Suspect]
     Active Substance: ALENDRONATE SODIUM
     Dosage: 70 UNK, UNK
     Route: 048
     Dates: start: 20100328
  4. ALENDRONATE SODIUM. [Suspect]
     Active Substance: ALENDRONATE SODIUM
     Dosage: 70 MG, UNK
     Route: 048
     Dates: start: 20100910, end: 20120220
  5. FOSAMAX PLUS D [Suspect]
     Active Substance: ALENDRONATE SODIUM\CHOLECALCIFEROL
     Indication: OSTEOPOROSIS
     Dosage: 70MG/2800IU QW
     Route: 048
     Dates: start: 200711, end: 20080606
  6. FOSAMAX [Suspect]
     Active Substance: ALENDRONATE SODIUM
     Indication: OSTEOPOROSIS
     Dosage: 70 MG, QW
     Route: 048
     Dates: start: 20020326
  7. ALENDRONATE SODIUM. [Suspect]
     Active Substance: ALENDRONATE SODIUM
     Dosage: 70 MG, QW
     Route: 048
     Dates: start: 20111107, end: 20120123
  8. ALENDRONATE SODIUM. [Suspect]
     Active Substance: ALENDRONATE SODIUM
     Dosage: 70 MG, UNK
     Dates: start: 20120301, end: 20120806

REACTIONS (53)
  - Transfusion [Unknown]
  - Wound infection staphylococcal [Unknown]
  - Type 2 diabetes mellitus [Unknown]
  - Panic attack [Unknown]
  - Pyelocaliectasis [Unknown]
  - Ileostomy [Unknown]
  - Body height decreased [Unknown]
  - Sleep apnoea syndrome [Unknown]
  - Tonsillectomy [Unknown]
  - Packed red blood cell transfusion [Unknown]
  - Bone disorder [Unknown]
  - Surgery [Unknown]
  - Pneumonia [Unknown]
  - Bone graft [Unknown]
  - Vomiting [Unknown]
  - Dry skin [Unknown]
  - Fatigue [Unknown]
  - Arthritis [Unknown]
  - Joint dislocation [Unknown]
  - Tooth loss [Unknown]
  - Tooth extraction [Unknown]
  - Arthralgia [Unknown]
  - Hip arthroplasty [Unknown]
  - Osteopenia [Unknown]
  - Nausea [Unknown]
  - Autoimmune hepatitis [Unknown]
  - Abdominal hernia [Unknown]
  - Hypoxia [Recovered/Resolved]
  - Dental prosthesis placement [Unknown]
  - Hip arthroplasty [Unknown]
  - Surgery [Unknown]
  - Ankle operation [Unknown]
  - Adenoidectomy [Unknown]
  - Device failure [Unknown]
  - Osteoarthritis [Unknown]
  - Synovitis [Unknown]
  - Osteoarthritis [Unknown]
  - Red blood cell sedimentation rate increased [Unknown]
  - Hip arthroplasty [Unknown]
  - Osteopenia [Unknown]
  - Varicella [Unknown]
  - Joint dislocation [Unknown]
  - Dental caries [Unknown]
  - C-reactive protein increased [Unknown]
  - Device material issue [Unknown]
  - Open reduction of fracture [Unknown]
  - Fall [Unknown]
  - Swelling face [Unknown]
  - Femur fracture [Unknown]
  - Weight increased [Unknown]
  - Oestrogen deficiency [Unknown]
  - Osteoarthritis [Unknown]
  - Ligament disorder [Unknown]

NARRATIVE: CASE EVENT DATE: 200205
